FAERS Safety Report 7171430-2 (Version None)
Quarter: 2010Q4

REPORT INFORMATION
  Report Type: 
  Country: None (occurrence: None)
  Receive Date: 20101217
  Receipt Date: 20101210
  Transmission Date: 20110411
  Serious: Yes (Hospitalization, Other)
  Sender: FDA-Public Use
  Company Number: JP-ABBOTT-10P-087-0686778-00

PATIENT
  Sex: Male
  Weight: 81 kg

DRUGS (8)
  1. KLARICID TABLETS [Suspect]
     Indication: HELICOBACTER INFECTION
     Dosage: 800MG DAILY
     Route: 048
     Dates: start: 20090402, end: 20090408
  2. OMEPRAZOLE [Suspect]
     Indication: DUODENAL ULCER
     Dosage: 20MG DAILY
     Route: 048
     Dates: start: 20090303, end: 20090331
  3. OMEPRAZOLE [Suspect]
     Indication: HELICOBACTER INFECTION
     Dosage: 40MG DAILY
     Route: 048
     Dates: start: 20090402, end: 20090408
  4. SAWACILLIN [Suspect]
     Indication: HELICOBACTER INFECTION
     Dosage: 1500MG DAILY
     Route: 048
     Dates: start: 20090402, end: 20090408
  5. GASTER [Suspect]
     Indication: DUODENAL ULCER
     Dosage: 20MG DAILY
     Route: 048
     Dates: start: 20090409, end: 20090413
  6. THIATON [Concomitant]
     Indication: ANALGESIC THERAPY
     Dosage: 30MG DAILY
     Route: 048
     Dates: start: 20090303, end: 20090309
  7. SELBEX [Concomitant]
     Indication: PROPHYLAXIS AGAINST GASTROINTESTINAL ULCER
     Dosage: 1.5 GRAM
     Route: 048
     Dates: start: 20090303, end: 20090309
  8. GASTROM [Concomitant]
     Indication: PROPHYLAXIS AGAINST GASTROINTESTINAL ULCER
     Dosage: 3.0 GRAM
     Route: 048
     Dates: start: 20090402, end: 20090408

REACTIONS (2)
  - HEPATITIS [None]
  - LIVER DISORDER [None]
